FAERS Safety Report 4800043-X (Version None)
Quarter: 2005Q4

REPORT INFORMATION
  Report Type: 
  Country: None (occurrence: None)
  Receive Date: 20051017
  Receipt Date: 20051006
  Transmission Date: 20060501
  Serious: Yes (Hospitalization)
  Sender: FDA-Public Use
  Company Number: US-JNJFOC-20051002117

PATIENT
  Sex: Female
  Weight: 61.69 kg

DRUGS (19)
  1. INFLIXIMAB [Suspect]
     Indication: RHEUMATOID ARTHRITIS
     Route: 042
  2. PROCARDIA [Concomitant]
  3. ATENOLOL [Concomitant]
  4. ARAVA [Concomitant]
  5. PREDNISONE [Concomitant]
  6. PROVERA [Concomitant]
  7. CLIMARA [Concomitant]
  8. ULTRAM [Concomitant]
  9. ASCORBIC ACID [Concomitant]
  10. VITAMIN E [Concomitant]
  11. CALCIUM GLUCONATE [Concomitant]
  12. MULTI-VITAMIN [Concomitant]
  13. MULTI-VITAMIN [Concomitant]
  14. MULTI-VITAMIN [Concomitant]
  15. MULTI-VITAMIN [Concomitant]
  16. MULTI-VITAMIN [Concomitant]
  17. MULTI-VITAMIN [Concomitant]
  18. MULTI-VITAMIN [Concomitant]
  19. MULTI-VITAMIN [Concomitant]

REACTIONS (2)
  - RENAL ARTERY FIBROMUSCULAR DYSPLASIA [None]
  - RENAL HYPERTENSION [None]
